FAERS Safety Report 12089397 (Version 2)
Quarter: 2016Q1

REPORT INFORMATION
  Report Type: Spontaneous
  Country: US (occurrence: US)
  Receive Date: 20160218
  Receipt Date: 20160317
  Transmission Date: 20160526
  Serious: Yes (Hospitalization)
  Sender: FDA-Public Use
  Company Number: US-PFIZER INC-2016036991

PATIENT
  Age: 44 Year
  Sex: Male
  Weight: 58 kg

DRUGS (18)
  1. TRUVADA [Concomitant]
     Active Substance: EMTRICITABINE\TENOFOVIR DISOPROXIL FUMARATE
     Indication: HERPES ZOSTER DISSEMINATED
     Dosage: UNK UNK, 1X/DAY (1 PO QD)
     Route: 048
     Dates: start: 201406
  2. TRUVADA [Concomitant]
     Active Substance: EMTRICITABINE\TENOFOVIR DISOPROXIL FUMARATE
     Indication: HIV INFECTION
     Dosage: 1 DF, DAILY
     Route: 048
  3. ULTRAM [Concomitant]
     Active Substance: TRAMADOL HYDROCHLORIDE
     Dosage: 50 MG, UNK
  4. NORCO [Concomitant]
     Active Substance: ACETAMINOPHEN\HYDROCODONE BITARTRATE
     Dosage: 1 DF, UNK
  5. OXYGEN. [Concomitant]
     Active Substance: OXYGEN
     Dosage: UNK
  6. DAPSONE. [Concomitant]
     Active Substance: DAPSONE
     Indication: CD4 LYMPHOCYTES INCREASED
  7. TIVICAY [Concomitant]
     Active Substance: DOLUTEGRAVIR SODIUM
     Indication: HERPES ZOSTER DISSEMINATED
     Dosage: UNK UNK, 1X/DAY (1 PO QD)
     Route: 048
     Dates: start: 201406
  8. DAPSONE. [Concomitant]
     Active Substance: DAPSONE
     Indication: HERPES ZOSTER DISSEMINATED
     Dosage: UNK, 1X/DAY
     Route: 048
     Dates: start: 201509
  9. DAPSONE. [Concomitant]
     Active Substance: DAPSONE
     Indication: HIV INFECTION
     Dosage: 100 MG, DAILY
     Route: 048
     Dates: start: 20160121
  10. TRAUMACAL [Concomitant]
     Dosage: UNK (1 CAN)
  11. MOTRIN [Concomitant]
     Active Substance: IBUPROFEN
     Dosage: 800 MG, UNK
  12. TIVICAY [Concomitant]
     Active Substance: DOLUTEGRAVIR SODIUM
     Indication: HIV INFECTION
     Dosage: 50 MG, DAILY
     Route: 048
  13. TRUVADA [Concomitant]
     Active Substance: EMTRICITABINE\TENOFOVIR DISOPROXIL FUMARATE
     Dosage: UNK UNK, DAILY (200-300 MG, TAKE 1 TAB BY MOUTH DAILY)
     Route: 048
  14. CIPRO HC [Concomitant]
     Active Substance: CIPROFLOXACIN HYDROCHLORIDE\HYDROCORTISONE
     Dosage: UNK (3 DROPS)
  15. ENSURE [Concomitant]
     Active Substance: AMINO ACIDS\DEXTROSE\ELECTROLYTES NOS\SOYBEAN OIL\VITAMINS
  16. VFEND [Suspect]
     Active Substance: VORICONAZOLE
     Indication: MENINGITIS CRYPTOCOCCAL
     Dosage: 200 MG, 2X/DAY
     Route: 048
     Dates: start: 201412
  17. NORCO [Concomitant]
     Active Substance: ACETAMINOPHEN\HYDROCODONE BITARTRATE
     Indication: PAIN
     Dosage: UNK UNK, AS NEEDED (HYDROCODONE BITARTRATE: 10, PARACETAMOL: 325)/1 PO Q80 PRN PAIN
     Route: 048
  18. COUMADIN [Concomitant]
     Active Substance: WARFARIN SODIUM
     Dosage: UNK

REACTIONS (8)
  - Oropharyngeal pain [Recovered/Resolved]
  - Electrolyte imbalance [Unknown]
  - Pancytopenia [Unknown]
  - Ear pain [Unknown]
  - Drug ineffective for unapproved indication [Recovering/Resolving]
  - Weight decreased [Unknown]
  - Osteoarthritis [Not Recovered/Not Resolved]
  - Headache [Recovered/Resolved]

NARRATIVE: CASE EVENT DATE: 20150609
